FAERS Safety Report 21345837 (Version 1)
Quarter: 2022Q3

REPORT INFORMATION
  Report Type: Spontaneous
  Country: CA (occurrence: CA)
  Receive Date: 20220916
  Receipt Date: 20220916
  Transmission Date: 20221026
  Serious: Yes (Other)
  Sender: FDA-Public Use
  Company Number: CA-PFIZER INC-202201165552

PATIENT
  Age: 73 Year
  Sex: Female
  Weight: 58 kg

DRUGS (8)
  1. AMLODIPINE BESYLATE [Suspect]
     Active Substance: AMLODIPINE BESYLATE
     Indication: Hypertension
     Dosage: 7.5 MG, 1X/DAY
     Route: 065
  2. CODEINE SULFATE [Concomitant]
     Active Substance: CODEINE SULFATE
  3. LIPITOR [Concomitant]
     Active Substance: ATORVASTATIN CALCIUM
     Route: 065
  4. LOSEC [Concomitant]
     Active Substance: OMEPRAZOLE
  5. MELOXICAM [Concomitant]
     Active Substance: MELOXICAM
  6. NORTRIPTYLINE [Concomitant]
     Active Substance: NORTRIPTYLINE
  7. NORVASC [Concomitant]
     Active Substance: AMLODIPINE BESYLATE
  8. SENOKOT [Concomitant]
     Active Substance: SENNOSIDES

REACTIONS (1)
  - Headache [Unknown]
